FAERS Safety Report 18223402 (Version 7)
Quarter: 2024Q4

REPORT INFORMATION
  Report Type: Report from Study
  Country: CA (occurrence: CA)
  Receive Date: 20200902
  Receipt Date: 20241016
  Transmission Date: 20250115
  Serious: Yes (Other)
  Sender: ROCHE
  Company Number: CA-ROCHE-2039909

PATIENT
  Age: 44 Year
  Sex: Male

DRUGS (2)
  1. OCREVUS [Suspect]
     Active Substance: OCRELIZUMAB
     Indication: Secondary progressive multiple sclerosis
     Dosage: 300 MG AT DAY 0 AND 14, THEN 600 MG EVERY 6 MONTH,?CONCENTRATE FOR INTRAVENOUS INFUSION, FIRST INDUC
     Route: 040
     Dates: start: 20171209
  2. OCREVUS [Suspect]
     Active Substance: OCRELIZUMAB
     Indication: Primary progressive multiple sclerosis
     Route: 042

REACTIONS (12)
  - Multiple sclerosis [Not Recovered/Not Resolved]
  - Blood glucose abnormal [Unknown]
  - Insomnia [Unknown]
  - Headache [Unknown]
  - Staphylococcal skin infection [Recovered/Resolved]
  - Influenza [Unknown]
  - Hypotension [Unknown]
  - Immunodeficiency [Unknown]
  - Skin infection [Unknown]
  - Off label use [Unknown]
  - Cough [Not Recovered/Not Resolved]
  - Malaise [Not Recovered/Not Resolved]

NARRATIVE: CASE EVENT DATE: 20180101
